FAERS Safety Report 5028783-0 (Version None)
Quarter: 2006Q2

REPORT INFORMATION
  Report Type: 
  Country: None (occurrence: None)
  Receive Date: 20060619
  Receipt Date: 20060606
  Transmission Date: 20061013
  Serious: Yes (Hospitalization, Other)
  Sender: FDA-Public Use
  Company Number: US-AVENTIS-200615131US

PATIENT
  Age: 31 Year
  Sex: Male

DRUGS (6)
  1. KETEK [Suspect]
     Indication: UPPER RESPIRATORY TRACT INFECTION
     Route: 048
     Dates: start: 20050928, end: 20051002
  2. KETEK [Suspect]
     Route: 048
     Dates: start: 20051007, end: 20051001
  3. KETEK [Suspect]
     Indication: SINUS DISORDER
     Route: 048
     Dates: start: 20050928, end: 20051002
  4. KETEK [Suspect]
     Route: 048
     Dates: start: 20051007, end: 20051001
  5. KETEK [Suspect]
     Indication: PHARYNGOLARYNGEAL PAIN
     Route: 048
     Dates: start: 20050928, end: 20051002
  6. KETEK [Suspect]
     Route: 048
     Dates: start: 20051007, end: 20051001

REACTIONS (7)
  - BLOOD BILIRUBIN INCREASED [None]
  - CHILLS [None]
  - HEPATITIS [None]
  - INTERNATIONAL NORMALISED RATIO INCREASED [None]
  - PAIN [None]
  - PYREXIA [None]
  - TRANSAMINASES INCREASED [None]
